FAERS Safety Report 5046330-4 (Version None)
Quarter: 2006Q2

REPORT INFORMATION
  Report Type: 
  Country: None (occurrence: None)
  Receive Date: 20060629
  Receipt Date: 20060615
  Transmission Date: 20061013
  Serious: Yes (Other)
  Sender: FDA-Public Use
  Company Number: 2006079889

PATIENT
  Sex: Male
  Weight: 97.5234 kg

DRUGS (2)
  1. SUDAFED 12 HOUR [Suspect]
     Indication: SEASONAL ALLERGY
     Dosage: ORAL
     Route: 048
  2. ASPIRIN [Concomitant]

REACTIONS (7)
  - AORTIC VALVE REPLACEMENT [None]
  - ATRIAL FIBRILLATION [None]
  - ERECTILE DYSFUNCTION [None]
  - HEART RATE INCREASED [None]
  - MIDDLE INSOMNIA [None]
  - RHINORRHOEA [None]
  - ROTATOR CUFF REPAIR [None]
